FAERS Safety Report 4435301-4 (Version None)
Quarter: 2004Q3

REPORT INFORMATION
  Report Type: 
  Country: None (occurrence: None)
  Receive Date: 20040826
  Receipt Date: 20040811
  Transmission Date: 20050211
  Serious: Yes (Hospitalization)
  Sender: FDA-Public Use
  Company Number: A02200402077

PATIENT
  Age: 56 Year
  Sex: Male

DRUGS (10)
  1. STILNOX (ZOLPIDEM) TABLET 10 MG [Suspect]
     Dosage: 10 MG OD
     Route: 048
  2. GLUCOPHAGE [Suspect]
     Indication: DIABETES MELLITUS NON-INSULIN-DEPENDENT
     Dosage: 1000 MG TID
     Route: 048
  3. OFLOXACIN [Suspect]
     Indication: DIABETIC FOOT INFECTION
     Route: 048
     Dates: start: 20040426, end: 20040516
  4. PRAVASTATIN SODIUM [Suspect]
     Indication: DYSLIPIDAEMIA
     Dosage: 40 MG OD
     Route: 048
  5. TRIATEC (RAMPRIL) TABLET 5MG [Suspect]
     Indication: HYPERTENSION
     Dosage: 10 MG OD
     Route: 048
  6. GLUCOR (ACARBOSE) TABLET 50 MG [Suspect]
     Indication: DIABETES MELLITUS NON-INSULIN-DEPENDENT
     Dosage: 50 MG TID
     Route: 048
  7. ASPIRIN [Concomitant]
  8. ZYLORIC (ALLOPURINOL) [Concomitant]
  9. TOPALGIC (TRAMADOL HYDROCHLORIDE) [Concomitant]
  10. TANAKAN (GINKGO TREE LEAVES EXTRACT) [Concomitant]

REACTIONS (4)
  - DIABETIC FOOT INFECTION [None]
  - OSTEITIS [None]
  - STAPHYLOCOCCAL INFECTION [None]
  - VASCULAR PURPURA [None]
